FAERS Safety Report 6699513-1 (Version None)
Quarter: 2010Q2

REPORT INFORMATION
  Report Type: 
  Country: None (occurrence: None)
  Receive Date: 20100427
  Receipt Date: 20100427
  Transmission Date: 20101027
  Serious: Yes (Disabling)
  Sender: FDA-Public Use
  Company Number: None

PATIENT
  Sex: Female

DRUGS (1)
  1. NEXAVAR [Suspect]
     Dosage: 400MG TWICE DAILY PO
     Route: 048
     Dates: start: 20100329, end: 20100401

REACTIONS (1)
  - HEPATIC ENZYME INCREASED [None]
